FAERS Safety Report 5986404-4 (Version None)
Quarter: 2008Q4

REPORT INFORMATION
  Report Type: 
  Country: None (occurrence: None)
  Receive Date: 20081209
  Receipt Date: 20081201
  Transmission Date: 20090506
  Serious: Yes (Other)
  Sender: FDA-Public Use
  Company Number: US-BAYER-200711507BWH

PATIENT
  Age: 81 Year
  Sex: Male
  Weight: 76 kg

DRUGS (38)
  1. NEXAVAR [Suspect]
     Indication: RENAL CELL CARCINOMA
     Dosage: TOTAL DAILY DOSE: 800 MG  UNIT DOSE: 200 MG
     Route: 048
     Dates: start: 20080920
  2. NEXAVAR [Suspect]
     Dosage: TOTAL DAILY DOSE: 400 MG  UNIT DOSE: 200 MG
     Route: 048
     Dates: start: 20080903, end: 20080920
  3. NEXAVAR [Suspect]
     Dosage: TOTAL DAILY DOSE: 800 MG  UNIT DOSE: 200 MG
     Route: 048
     Dates: start: 20080808, end: 20080830
  4. NEXAVAR [Suspect]
     Dosage: TOTAL DAILY DOSE: 800 MG  UNIT DOSE: 200 MG
     Route: 048
     Dates: start: 20080530, end: 20080801
  5. NEXAVAR [Suspect]
     Dosage: TOTAL DAILY DOSE: 400 MG  UNIT DOSE: 200 MG
     Route: 048
     Dates: start: 20070725, end: 20080211
  6. NEXAVAR [Suspect]
     Dosage: TOTAL DAILY DOSE: 800 MG  UNIT DOSE: 200 MG
     Route: 048
     Dates: start: 20070111, end: 20070613
  7. AVODART [Concomitant]
     Dosage: TOTAL DAILY DOSE: 0.5 MG
  8. LOTREL [Concomitant]
  9. TERAZOSIN HCL [Concomitant]
     Dosage: TOTAL DAILY DOSE: 10 MG
  10. NEUTRO PHOS [Concomitant]
  11. CALCIUM [Concomitant]
     Dosage: TOTAL DAILY DOSE: 2400 MG
  12. PRILOSEC [Concomitant]
     Dosage: TOTAL DAILY DOSE: 20 MG
  13. TRAMADOL HCL [Concomitant]
  14. PROMETHAZINE [Concomitant]
  15. EPO [Concomitant]
  16. POTASSIUM PHOSPHATES [Concomitant]
  17. CALCIUM [Concomitant]
     Dosage: TOTAL DAILY DOSE: 1200 MG
  18. MAGNESIUM SULFATE [Concomitant]
     Dosage: TOTAL DAILY DOSE: 250 MG
  19. PYRIDIUM [Concomitant]
     Dosage: TOTAL DAILY DOSE: 2 DF
  20. PROSCAR [Concomitant]
  21. NEUTRA-PHOS [Concomitant]
  22. ATACAND [Concomitant]
     Dosage: TOTAL DAILY DOSE: 16 MG
  23. NIFEDIPINE [Concomitant]
     Dosage: TOTAL DAILY DOSE: 180 MG
  24. NIFEDIPINE [Concomitant]
     Dosage: TOTAL DAILY DOSE: 90 MG
  25. NIFEDIPINE [Concomitant]
     Dosage: TOTAL DAILY DOSE: 60 MG
  26. MECLIZINE [Concomitant]
  27. NASONEX [Concomitant]
  28. COUMADIN [Concomitant]
  29. VICODIN [Concomitant]
  30. MS CONTIN [Concomitant]
     Dosage: TOTAL DAILY DOSE: 30 MG
     Route: 048
  31. OXYCODONE HCL [Concomitant]
     Indication: PAIN
  32. CHONDROITIN SULFATE [Concomitant]
  33. VITAMINS [Concomitant]
  34. FLOMAX [Concomitant]
  35. UROXATRAL [Concomitant]
     Dosage: TOTAL DAILY DOSE: 10 MG
  36. GLYCOLAX [Concomitant]
  37. PHENERGAN HCL [Concomitant]
  38. ATIVAN [Concomitant]

REACTIONS (15)
  - ABDOMINAL PAIN [None]
  - BLISTER [None]
  - CONJUNCTIVITIS [None]
  - COUGH [None]
  - DRY THROAT [None]
  - DYSPHONIA [None]
  - FLATULENCE [None]
  - GASTROINTESTINAL MOTILITY DISORDER [None]
  - METASTASES TO BONE [None]
  - NAUSEA [None]
  - PAIN IN EXTREMITY [None]
  - RASH [None]
  - SKIN ULCER [None]
  - TENDON PAIN [None]
  - URINARY TRACT INFECTION [None]
